FAERS Safety Report 8562994-2 (Version None)
Quarter: 2012Q3

REPORT INFORMATION
  Report Type: 
  Country: None (occurrence: None)
  Receive Date: 20120802
  Receipt Date: 20120720
  Transmission Date: 20120928
  Serious: No
  Sender: FDA-Public Use
  Company Number: US-AMGEN-USASP2011026641

PATIENT
  Age: 66 Year
  Sex: Male

DRUGS (7)
  1. PLAVIX [Concomitant]
     Dosage: UNK
  2. ENBREL [Suspect]
     Indication: PSORIASIS
     Dosage: 50 MG, QWK
     Dates: start: 20110516, end: 20111024
  3. ASPIRIN [Concomitant]
     Dosage: UNK
  4. METOPROLOL TARTRATE [Concomitant]
     Dosage: UNK
  5. NITROBID                           /00003201/ [Concomitant]
     Dosage: UNK
  6. LISINOPRIL [Concomitant]
     Dosage: UNK
  7. VIAGRA [Concomitant]
     Dosage: UNK

REACTIONS (4)
  - DERMATITIS BULLOUS [None]
  - DIARRHOEA [None]
  - STAPHYLOCOCCAL ABSCESS [None]
  - RASH PAPULAR [None]
